FAERS Safety Report 13836331 (Version 2)
Quarter: 2017Q4

REPORT INFORMATION
  Report Type: Spontaneous
  Country: UY (occurrence: UY)
  Receive Date: 20170804
  Receipt Date: 20171016
  Transmission Date: 20180320
  Serious: Yes (Other)
  Sender: FDA-Public Use
  Company Number: PHHY2017UY113644

PATIENT
  Sex: Male

DRUGS (2)
  1. COSENTYX [Suspect]
     Active Substance: SECUKINUMAB
     Indication: FOETAL EXPOSURE DURING PREGNANCY
     Dosage: MATERNAL DOSE
     Route: 064
  2. METHOTREXATE. [Suspect]
     Active Substance: METHOTREXATE
     Indication: FOETAL EXPOSURE DURING PREGNANCY
     Dosage: MATERNAL DOSE
     Route: 064

REACTIONS (2)
  - Hypoglycaemia [Recovered/Resolved]
  - Premature baby [Unknown]

NARRATIVE: CASE EVENT DATE: 20170723
